FAERS Safety Report 15858385 (Version 2)
Quarter: 2019Q1

REPORT INFORMATION
  Report Type: Spontaneous
  Country: US (occurrence: US)
  Receive Date: 20190123
  Receipt Date: 20190212
  Transmission Date: 20190417
  Serious: No
  Sender: FDA-Public Use
  Company Number: US-PFIZER INC-2019029661

PATIENT
  Age: 52 Year
  Sex: Male

DRUGS (1)
  1. IBRANCE [Suspect]
     Active Substance: PALBOCICLIB
     Indication: NEOPLASM MALIGNANT
     Dosage: 125 MG, DAILY (1 CAPSULE DAILY FOR 21 DAYS THEN OFF FOR 7 DAYS))
     Dates: start: 20190110

REACTIONS (4)
  - Fatigue [Unknown]
  - Stomatitis [Unknown]
  - Product use issue [Unknown]
  - Lacrimation increased [Unknown]

NARRATIVE: CASE EVENT DATE: 20190110
